FAERS Safety Report 5947721-7 (Version None)
Quarter: 2008Q4

REPORT INFORMATION
  Report Type: 
  Country: None (occurrence: None)
  Receive Date: 20081110
  Receipt Date: 20081110
  Transmission Date: 20090506
  Serious: Yes (Life-Threatening)
  Sender: FDA-Public Use
  Company Number: None

PATIENT
  Age: 66 Year
  Sex: Female
  Weight: 81.6475 kg

DRUGS (6)
  1. SOTALOL HCL [Suspect]
     Indication: ATRIAL FIBRILLATION
     Dosage: 40MG 2 TIMES A DAY BUCCAL
     Route: 002
     Dates: start: 20081108, end: 20081110
  2. SYNTHROID [Concomitant]
  3. PRAVASTATIN [Concomitant]
  4. WARFARIN SODIUM [Concomitant]
  5. NITROGLYCERIN [Concomitant]
  6. OXYMETAZOLINE HYDROCHLORIDE [Concomitant]

REACTIONS (5)
  - ATRIAL FIBRILLATION [None]
  - DRUG INEFFECTIVE [None]
  - HEART RATE ABNORMAL [None]
  - PHOTOPSIA [None]
  - PRODUCT QUALITY ISSUE [None]
